FAERS Safety Report 5003058-4 (Version None)
Quarter: 2006Q2

REPORT INFORMATION
  Report Type: 
  Country: None (occurrence: None)
  Receive Date: 20060512
  Receipt Date: 20060503
  Transmission Date: 20061013
  Serious: Yes (Death)
  Sender: FDA-Public Use
  Company Number: 163-20785-06040024

PATIENT
  Age: 81 Year
  Sex: Female

DRUGS (2)
  1. THALOMID [Suspect]
     Indication: MULTIPLE MYELOMA
     Dosage: 100 MG, DAILY, ORAL
     Route: 048
     Dates: start: 20050707, end: 20051101
  2. DECADRON SRC [Suspect]
     Dosage: 4 DAYS MONTHLY

REACTIONS (2)
  - BRAIN NEOPLASM [None]
  - DISEASE PROGRESSION [None]
